FAERS Safety Report 19826725 (Version 2)
Quarter: 2021Q3

REPORT INFORMATION
  Report Type: Spontaneous
  Country: US (occurrence: US)
  Receive Date: 20210913
  Receipt Date: 20210927
  Transmission Date: 20211014
  Serious: No
  Sender: FDA-Public Use
  Company Number: US-GLAXOSMITHKLINE-US2021AMR193198

PATIENT
  Age: 53 Year
  Sex: Female

DRUGS (1)
  1. ZEJULA [Suspect]
     Active Substance: NIRAPARIB
     Indication: OVARIAN CANCER
     Dosage: 300 MG, QD
     Dates: start: 20210901

REACTIONS (9)
  - Dizziness [Unknown]
  - Nausea [Unknown]
  - Salivary hypersecretion [Unknown]
  - Contusion [Unknown]
  - Hypoaesthesia [Unknown]
  - Insomnia [Unknown]
  - Tremor [Unknown]
  - Fatigue [Unknown]
  - Vomiting [Unknown]

NARRATIVE: CASE EVENT DATE: 202109
